FAERS Safety Report 16387305 (Version 1)
Quarter: 2019Q2

REPORT INFORMATION
  Report Type: Spontaneous
  Country: US (occurrence: US)
  Receive Date: 20190604
  Receipt Date: 20190604
  Transmission Date: 20190711
  Serious: Yes (Other)
  Sender: FDA-Public Use
  Company Number: US-ROCHE-2331021

PATIENT
  Sex: Female

DRUGS (7)
  1. PANTOPRAZOLE SODIUM. [Concomitant]
     Active Substance: PANTOPRAZOLE SODIUM
  2. TRAMADOL. [Concomitant]
     Active Substance: TRAMADOL
  3. LEVOTHYROXINE. [Concomitant]
     Active Substance: LEVOTHYROXINE
  4. CARVEDILOL. [Concomitant]
     Active Substance: CARVEDILOL
     Route: 065
  5. ESBRIET [Suspect]
     Active Substance: PIRFENIDONE
     Indication: IDIOPATHIC PULMONARY FIBROSIS
     Route: 048
     Dates: start: 20180206
  6. ESBRIET [Suspect]
     Active Substance: PIRFENIDONE
     Dosage: ONGOING: UNKNOWN
     Route: 048
     Dates: start: 20160908, end: 20180205
  7. ESBRIET [Suspect]
     Active Substance: PIRFENIDONE
     Dosage: ONGOING: UNKNOWN
     Route: 048
     Dates: start: 20150311, end: 20160907

REACTIONS (1)
  - Pneumonia [Unknown]
